FAERS Safety Report 4594138-6 (Version None)
Quarter: 2005Q1

REPORT INFORMATION
  Report Type: 
  Country: None (occurrence: None)
  Receive Date: 20050301
  Receipt Date: 20050216
  Transmission Date: 20050727
  Serious: Yes (Other)
  Sender: FDA-Public Use
  Company Number: US-GLAXOSMITHKLINE-A0545930A

PATIENT
  Age: 50 Year
  Sex: Female

DRUGS (3)
  1. LAMICTAL [Suspect]
     Indication: BIPOLAR DISORDER
     Route: 048
     Dates: start: 20041101, end: 20050101
  2. SEROQUEL [Concomitant]
  3. LEXAPRO [Concomitant]

REACTIONS (3)
  - CELLULITIS [None]
  - ECZEMA [None]
  - RASH [None]
